FAERS Safety Report 5014700-6 (Version None)
Quarter: 2006Q2

REPORT INFORMATION
  Report Type: 
  Country: None (occurrence: None)
  Receive Date: 20060522
  Receipt Date: 20060508
  Transmission Date: 20061013
  Serious: Yes (Hospitalization)
  Sender: FDA-Public Use
  Company Number: GAM-066-06-P

PATIENT
  Age: 42 Year
  Sex: Female

DRUGS (1)
  1. OCTAGAM [Suspect]
     Indication: LINEAR IGA DISEASE
     Dosage: 0.4 G/KG
     Route: 042
     Dates: start: 20060403, end: 20060407

REACTIONS (6)
  - BLOOD CREATINE PHOSPHOKINASE INCREASED [None]
  - BLOOD LACTATE DEHYDROGENASE INCREASED [None]
  - LEUKOCYTOSIS [None]
  - LIPECTOMY [None]
  - MYALGIA [None]
  - PYREXIA [None]
